FAERS Safety Report 12907418 (Version 2)
Quarter: 2016Q4

REPORT INFORMATION
  Report Type: Spontaneous
  Country: None (occurrence: JP)
  Receive Date: 20161103
  Receipt Date: 20161107
  Transmission Date: 20170207
  Serious: Yes (Life-Threatening)
  Sender: FDA-Public Use
  Company Number: JP-EISAI MEDICAL RESEARCH-EC-2016-021842

PATIENT
  Age: 61 Year
  Sex: Female

DRUGS (1)
  1. LENVATINIB [Suspect]
     Active Substance: LENVATINIB
     Indication: ANAPLASTIC THYROID CANCER
     Route: 048

REACTIONS (2)
  - Carotid artery perforation [Recovered/Resolved]
  - Hypertension [Unknown]
